FAERS Safety Report 21687550 (Version 1)
Quarter: 2022Q4

REPORT INFORMATION
  Report Type: Report from Study
  Country: AU (occurrence: AU)
  Receive Date: 20221206
  Receipt Date: 20221206
  Transmission Date: 20230112
  Serious: Yes (Other)
  Sender: FDA-Public Use
  Company Number: AU-SUN PHARMACEUTICAL INDUSTRIES LTD-2022RR-367335

PATIENT
  Age: 16 Year
  Sex: Female

DRUGS (4)
  1. SERTRALINE [Suspect]
     Active Substance: SERTRALINE HYDROCHLORIDE
     Indication: Borderline personality disorder
     Dosage: 100 MILLIGRAM, MANE
     Route: 065
  2. ACETAMINOPHEN [Suspect]
     Active Substance: ACETAMINOPHEN
     Indication: Product used for unknown indication
     Dosage: UNK
     Route: 065
  3. QUETIAPINE [Suspect]
     Active Substance: QUETIAPINE
     Indication: Borderline personality disorder
     Dosage: 50 MILLIGRAM, NOCTE
     Route: 065
  4. MELATONIN [Suspect]
     Active Substance: MELATONIN
     Indication: Borderline personality disorder
     Dosage: 4 MILLIGRAM, NOCTE
     Route: 065

REACTIONS (2)
  - Overdose [Unknown]
  - Therapeutic product effect incomplete [Unknown]
